FAERS Safety Report 25103591 (Version 1)
Quarter: 2025Q1

REPORT INFORMATION
  Report Type: Spontaneous
  Country: CN (occurrence: CN)
  Receive Date: 20250321
  Receipt Date: 20250321
  Transmission Date: 20250409
  Serious: Yes (Hospitalization, Disabling, Other)
  Sender: TAKEDA
  Company Number: CN-HUTCHMED LIMITED-HMP2025CN00608

PATIENT
  Age: 55 Year
  Sex: Female
  Weight: 64 kg

DRUGS (2)
  1. FRUQUINTINIB [Suspect]
     Active Substance: FRUQUINTINIB
     Indication: Rectal cancer
     Dates: start: 20250115, end: 20250128
  2. FRUQUINTINIB [Suspect]
     Active Substance: FRUQUINTINIB
     Dosage: 4 MILLIGRAM, QD
     Dates: start: 20250207, end: 20250220

REACTIONS (6)
  - Nephrotic syndrome [Recovering/Resolving]
  - Neoplasm progression [Unknown]
  - Urine output decreased [Recovering/Resolving]
  - Glomerular filtration rate decreased [Recovering/Resolving]
  - White blood cells urine positive [Recovering/Resolving]
  - Urinary occult blood positive [Recovering/Resolving]

NARRATIVE: CASE EVENT DATE: 20250205
